FAERS Safety Report 6451749-0 (Version None)
Quarter: 2009Q4

REPORT INFORMATION
  Report Type: 
  Country: None (occurrence: None)
  Receive Date: 20091123
  Receipt Date: 20091113
  Transmission Date: 20100525
  Serious: Yes (Other)
  Sender: FDA-Public Use
  Company Number: JP-PFIZER INC-2009255789

PATIENT
  Sex: Male

DRUGS (2)
  1. CHAMPIX [Suspect]
     Dates: start: 20090528
  2. LITHIUM [Concomitant]

REACTIONS (6)
  - ATRIOVENTRICULAR BLOCK [None]
  - BLOOD URIC ACID ABNORMAL [None]
  - DIZZINESS [None]
  - NAUSEA [None]
  - RENAL IMPAIRMENT [None]
  - THERAPEUTIC AGENT TOXICITY [None]
